FAERS Safety Report 8086484-9 (Version None)
Quarter: 2012Q1

REPORT INFORMATION
  Report Type: 
  Country: None (occurrence: None)
  Receive Date: 20120128
  Receipt Date: 20110506
  Transmission Date: 20120608
  Serious: No
  Sender: FDA-Public Use
  Company Number: US-ABBOTT-11P-163-0724027-00

PATIENT
  Sex: Female

DRUGS (2)
  1. HUMIRA [Suspect]
     Indication: PSORIASIS
     Dates: start: 20110411
  2. HUMIRA [Suspect]
     Indication: POLYARTHRITIS
     Dates: start: 20090101, end: 20100101

REACTIONS (2)
  - SINUSITIS [None]
  - PSORIASIS [None]
